FAERS Safety Report 6647017-4 (Version None)
Quarter: 2010Q1

REPORT INFORMATION
  Report Type: 
  Country: None (occurrence: None)
  Receive Date: 20100323
  Receipt Date: 20100112
  Transmission Date: 20100710
  Serious: No
  Sender: FDA-Public Use
  Company Number: A0838979A

PATIENT
  Age: 55 Year
  Sex: Female

DRUGS (3)
  1. LAMICTAL CD [Suspect]
     Dosage: 50MG PER DAY
     Route: 048
     Dates: start: 20090106
  2. PHENOBARBITAL TAB [Concomitant]
  3. TEGRETOL [Concomitant]

REACTIONS (6)
  - ASTHENIA [None]
  - FEELING ABNORMAL [None]
  - HEADACHE [None]
  - INSOMNIA [None]
  - MILIA [None]
  - TREMOR [None]
